FAERS Safety Report 9410173 (Version 3)
Quarter: 2013Q4

REPORT INFORMATION
  Report Type: Report from Study
  Country: DE (occurrence: DE)
  Receive Date: 20130719
  Receipt Date: 20131021
  Transmission Date: 20140711
  Serious: Yes (Death, Hospitalization, Other)
  Sender: FDA-Public Use
  Company Number: DE-ROCHE-1247816

PATIENT
  Age: 65 Year
  Sex: Female
  Weight: 73 kg

DRUGS (13)
  1. PERTUZUMAB [Suspect]
     Indication: BREAST CANCER
     Dosage: LOADING DOSE
     Route: 042
     Dates: start: 20130625
  2. PERTUZUMAB [Suspect]
     Dosage: MAINTENANCE DOSE
     Route: 042
     Dates: start: 20130716
  3. TRASTUZUMAB [Suspect]
     Indication: BREAST CANCER
     Dosage: LOADING DOSE
     Route: 042
     Dates: start: 20130625
  4. TRASTUZUMAB [Suspect]
     Dosage: MAINTENANCE DOSE
     Route: 042
     Dates: start: 20130716
  5. DOCETAXEL [Suspect]
     Indication: BREAST CANCER
     Route: 042
     Dates: start: 20130625
  6. DOLORMIN [Concomitant]
     Indication: PAIN
     Route: 048
     Dates: start: 20100809
  7. DEXAMETHASONE [Concomitant]
     Indication: NAUSEA
     Route: 048
     Dates: start: 20130625, end: 20130627
  8. DEXAMETHASONE [Concomitant]
     Indication: VOMITING
     Route: 048
     Dates: start: 20130715, end: 20130717
  9. DEXAMETHASONE [Concomitant]
     Route: 048
     Dates: start: 20130805, end: 20130807
  10. ONDANSETRON [Concomitant]
     Indication: VOMITING
     Route: 048
     Dates: start: 20130626, end: 20130627
  11. ONDANSETRON [Concomitant]
     Route: 048
     Dates: start: 20130717, end: 20130718
  12. ONDANSETRON [Concomitant]
     Route: 048
     Dates: start: 20130807, end: 20130808
  13. MCP [Concomitant]
     Indication: VOMITING
     Route: 048
     Dates: start: 20130625

REACTIONS (6)
  - Febrile neutropenia [Recovered/Resolved]
  - Diarrhoea [Unknown]
  - Lung infiltration [Unknown]
  - Death [Fatal]
  - Nasopharyngitis [Recovered/Resolved]
  - Diarrhoea [Recovered/Resolved]
